FAERS Safety Report 5363558-4 (Version None)
Quarter: 2007Q2

REPORT INFORMATION
  Report Type: 
  Country: None (occurrence: None)
  Receive Date: 20070620
  Receipt Date: 20070608
  Transmission Date: 20071010
  Serious: Yes (Other)
  Sender: FDA-Public Use
  Company Number: ES-AMGEN-UK229333

PATIENT
  Sex: Female

DRUGS (1)
  1. KINERET [Suspect]
     Indication: SYSTEMIC LUPUS ERYTHEMATOSUS
     Route: 065
     Dates: start: 20040716, end: 20060220

REACTIONS (2)
  - ESCHERICHIA SEPSIS [None]
  - PANCYTOPENIA [None]
